FAERS Safety Report 4890007-2 (Version None)
Quarter: 2006Q1

REPORT INFORMATION
  Report Type: 
  Country: None (occurrence: None)
  Receive Date: 20060124
  Receipt Date: 20060102
  Transmission Date: 20060701
  Serious: Yes (Hospitalization)
  Sender: FDA-Public Use
  Company Number: US-ROCHE-430469

PATIENT
  Age: 70 Year
  Sex: Male
  Weight: 99 kg

DRUGS (5)
  1. KLONOPIN [Suspect]
     Indication: MYOCLONUS
     Route: 048
     Dates: start: 20051115, end: 20051215
  2. KEPPRA [Interacting]
     Indication: MYOCLONUS
     Route: 048
     Dates: start: 20051115, end: 20051215
  3. ASPIRIN [Interacting]
     Indication: DRUG USE FOR UNKNOWN INDICATION
     Route: 048
  4. VERAPAMIL [Concomitant]
     Route: 048
  5. COUMADIN [Concomitant]

REACTIONS (9)
  - CONFUSIONAL STATE [None]
  - DRUG INTERACTION [None]
  - HAEMODIALYSIS [None]
  - METABOLIC ACIDOSIS [None]
  - NAUSEA [None]
  - RESPIRATORY RATE INCREASED [None]
  - THERAPEUTIC AGENT TOXICITY [None]
  - TINNITUS [None]
  - VOMITING [None]
